FAERS Safety Report 20390318 (Version 4)
Quarter: 2022Q1

REPORT INFORMATION
  Report Type: Spontaneous
  Country: GB (occurrence: GB)
  Receive Date: 20220128
  Receipt Date: 20220303
  Transmission Date: 20220423
  Serious: Yes (Death, Other)
  Sender: FDA-Public Use
  Company Number: GB-MYLANLABS-2022M1008131

PATIENT
  Age: 77 Year
  Sex: Female

DRUGS (3)
  1. CLOZARIL [Suspect]
     Active Substance: CLOZAPINE
     Indication: Schizophrenia
     Dosage: 75 MG AM, 100 MG PM
     Route: 048
     Dates: start: 20090706, end: 20220122
  2. CLOZARIL [Suspect]
     Active Substance: CLOZAPINE
     Dosage: 100 MILLIGRAM, QD (PM)
     Route: 048
     Dates: start: 20220122
  3. CLOZARIL [Suspect]
     Active Substance: CLOZAPINE
     Dosage: 100 MILLIGRAM, QD, NOCTE
     Route: 048
     Dates: start: 20090706, end: 20220222

REACTIONS (3)
  - Pneumonia aspiration [Fatal]
  - General physical health deterioration [Recovering/Resolving]
  - Off label use [Unknown]
